FAERS Safety Report 5916119-X (Version None)
Quarter: 2008Q4

REPORT INFORMATION
  Report Type: 
  Country: None (occurrence: None)
  Receive Date: 20081013
  Receipt Date: 20080930
  Transmission Date: 20090506
  Serious: Yes (Other)
  Sender: FDA-Public Use
  Company Number: FR-BRACCO-000127

PATIENT
  Age: 51 Year
  Sex: Female
  Weight: 47 kg

DRUGS (4)
  1. IOPAMIDOL [Suspect]
     Indication: ANGIOGRAM
     Route: 065
     Dates: start: 20080805, end: 20080805
  2. IOPAMIDOL [Suspect]
     Indication: ATRIAL SEPTAL DEFECT
     Route: 065
     Dates: start: 20080805, end: 20080805
  3. NAXY [Concomitant]
     Indication: BRONCHITIS
     Route: 065
     Dates: start: 20080809
  4. ASPIRIN [Concomitant]
     Indication: PATENT DUCTUS ARTERIOSUS
     Route: 065

REACTIONS (9)
  - BRONCHITIS [None]
  - DRUG HYPERSENSITIVITY [None]
  - HYPOCAPNIA [None]
  - NIGHTMARE [None]
  - OLIGURIA [None]
  - PULMONARY CONGESTION [None]
  - RIGHT VENTRICULAR FAILURE [None]
  - TACHYCARDIA [None]
  - TYPE IV HYPERSENSITIVITY REACTION [None]
